FAERS Safety Report 6509205-7 (Version None)
Quarter: 2009Q4

REPORT INFORMATION
  Report Type: 
  Country: None (occurrence: None)
  Receive Date: 20091221
  Receipt Date: 20090731
  Transmission Date: 20100525
  Serious: No
  Sender: FDA-Public Use
  Company Number: US-TYCO HEALTHCARE/MALLINCKRODT-T200901453

PATIENT
  Age: 56 Year
  Sex: Male

DRUGS (2)
  1. ULTRA-TECHNEKOW [Suspect]
     Dosage: UNK
     Dates: start: 20090608, end: 20090608
  2. TECHNETIUM TC 99M SULFUR COLLOID [Suspect]
     Dosage: UNK
     Dates: start: 20090608, end: 20090608

REACTIONS (2)
  - BLISTER [None]
  - HYPERSENSITIVITY [None]
